FAERS Safety Report 12824153 (Version 2)
Quarter: 2019Q1

REPORT INFORMATION
  Report Type: Spontaneous
  Country: FR (occurrence: FR)
  Receive Date: 20161007
  Receipt Date: 20190212
  Transmission Date: 20190417
  Serious: Yes (Hospitalization)
  Sender: FDA-Public Use
  Company Number: FR-AUROBINDO-AUR-APL-2016-12220

PATIENT

DRUGS (19)
  1. ZELITREX [Concomitant]
     Active Substance: VALACYCLOVIR HYDROCHLORIDE
     Indication: ANTIVIRAL PROPHYLAXIS
     Dosage: 500 MG, TWO TIMES A DAY
     Route: 048
     Dates: start: 20160816
  2. EMEND [Suspect]
     Active Substance: APREPITANT
     Indication: PROPHYLAXIS OF NAUSEA AND VOMITING
     Dosage: 125 MILLIGRAM
     Route: 048
     Dates: start: 20160816, end: 20160817
  3. DOXORUBICINE TEVA [Suspect]
     Active Substance: DOXORUBICIN
     Indication: HODGKIN^S DISEASE STAGE IV
     Dosage: AT DAY 1, 2 AND 3 EVERY 28 DAYS (52 MG)
     Route: 042
     Dates: start: 20160816, end: 20160816
  4. ONDANSETRON ORODISPERSIBLE TABLET 8MG [Suspect]
     Active Substance: ONDANSETRON
     Indication: PROPHYLAXIS OF NAUSEA AND VOMITING
     Dosage: AT DAY 1, 2 AND 3
     Route: 048
     Dates: start: 20160816, end: 20160817
  5. ETOPOSIDE MYLAN [Suspect]
     Active Substance: ETOPOSIDE
     Indication: HODGKIN^S DISEASE STAGE IV
     Dosage: 310 MILLIGRAM
     Route: 042
     Dates: start: 20160816, end: 20160817
  6. DIFFU K [Concomitant]
     Active Substance: POTASSIUM CHLORIDE
     Indication: PRODUCT USED FOR UNKNOWN INDICATION
     Dosage: TWO DOSAGE FORMS ONCE A DAY
  7. METHYLPREDNISOLONE MYLAN [Suspect]
     Active Substance: METHYLPREDNISOLONE
     Indication: HODGKIN^S DISEASE STAGE IV
     Dosage: 40 MILLIGRAM
     Route: 042
     Dates: start: 20160816, end: 20160816
  8. XANAX [Concomitant]
     Active Substance: ALPRAZOLAM
     Indication: PRODUCT USED FOR UNKNOWN INDICATION
     Dosage: ONE DOSAGE FORM TWICE A DAY
  9. ENDOXAN [Suspect]
     Active Substance: CYCLOPHOSPHAMIDE
     Indication: HODGKIN^S DISEASE STAGE IV
     Dosage: 67.142 MG, (1880 MG EVERY 28 DAYS)
     Route: 042
     Dates: start: 20160816, end: 20160816
  10. CORTANCYL [Suspect]
     Active Substance: PREDNISONE
     Indication: HODGKIN^S DISEASE STAGE IV
     Dosage: 60 MG (60 MG ONCE A DAY)
     Route: 048
     Dates: start: 20160817, end: 20160817
  11. UROMITEXAN [Suspect]
     Active Substance: MESNA
     Dosage: 675 MILLIGRAM,PUIS 3000 MG PAR VOIE ORALE
     Route: 042
     Dates: start: 20160816, end: 20160816
  12. INEXIUM [Concomitant]
     Active Substance: ESOMEPRAZOLE
     Indication: PRODUCT USED FOR UNKNOWN INDICATION
     Dosage: ONE DOSAGE FORM ONCE A DAY
     Route: 065
  13. EFFEXOR [Concomitant]
     Active Substance: VENLAFAXINE HYDROCHLORIDE
     Indication: PRODUCT USED FOR UNKNOWN INDICATION
     Dosage: ONE DOSAGE FORM IN THE MORNING AND HALF OF A DOSAGE FORM AT MIDDAY
  14. UROMITEXAN [Suspect]
     Active Substance: MESNA
     Indication: PROPHYLAXIS URINARY TRACT INFECTION
     Dosage: 688.5 MG, UNK
     Route: 042
     Dates: start: 20160816, end: 20160816
  15. UROMITEXAN [Suspect]
     Active Substance: MESNA
     Dosage: 3000 MG, UNK
     Route: 048
     Dates: start: 20160816, end: 20160816
  16. ENDOXAN [Suspect]
     Active Substance: CYCLOPHOSPHAMIDE
     Dosage: 67.142 MG, (1880 MG EVERY 28 DAYS)
     Route: 042
     Dates: start: 20160816, end: 20160816
  17. BACTRIM [Concomitant]
     Active Substance: SULFAMETHOXAZOLE\TRIMETHOPRIM
     Indication: ANTIBIOTIC PROPHYLAXIS
     Dosage: 1 LUNDI, 1 MARDI, 1 VENDREDI
     Route: 048
     Dates: start: 20160817
  18. OFLOXACINE [Concomitant]
     Active Substance: OFLOXACIN
     Indication: ANTIBIOTIC PROPHYLAXIS
     Dosage: 200 MG, TWO TIMES A DAY
     Route: 048
     Dates: start: 20160810
  19. NATULAN [Suspect]
     Active Substance: PROCARBAZINE HYDROCHLORIDE
     Indication: HODGKIN^S DISEASE STAGE IV
     Dosage: 150 MG, ONCE A DAY
     Route: 048
     Dates: start: 20160816, end: 20160822

REACTIONS (1)
  - Rash maculo-papular [Recovered/Resolved]

NARRATIVE: CASE EVENT DATE: 20160818
